FAERS Safety Report 4389715-1 (Version None)
Quarter: 2004Q2

REPORT INFORMATION
  Report Type: 
  Country: None (occurrence: None)
  Receive Date: 20040629
  Receipt Date: 20030812
  Transmission Date: 20050107
  Serious: Yes (Other)
  Sender: FDA-Public Use
  Company Number: US-JNJFOC-20030802761

PATIENT
  Age: 55 Year
  Sex: Female

DRUGS (6)
  1. DURAGESIC [Suspect]
     Indication: PAIN
     Dosage: 50 UG/HR, 1 IN 72 HOUR, TRANSDERMAL
     Route: 062
     Dates: start: 20030809
  2. ACTIQ [Concomitant]
  3. BLOOD PRESSURE MEDICATION (ANTIHYPERTENSIVES) [Concomitant]
  4. EFFEXOR [Concomitant]
  5. BUSPAR [Concomitant]
  6. SYNTHROID [Concomitant]

REACTIONS (6)
  - BLOOD PRESSURE INCREASED [None]
  - DRUG INEFFECTIVE [None]
  - DRUG WITHDRAWAL SYNDROME [None]
  - HYPERHIDROSIS [None]
  - PAIN [None]
  - TREMOR [None]
